FAERS Safety Report 17836009 (Version 1)
Quarter: 2020Q2

REPORT INFORMATION
  Report Type: Spontaneous
  Country: US (occurrence: US)
  Receive Date: 20200528
  Receipt Date: 20200528
  Transmission Date: 20200714
  Serious: Yes (Other)
  Sender: FDA-Public Use
  Company Number: US-PFIZER INC-2020206011

PATIENT
  Age: 51 Year
  Sex: Female

DRUGS (5)
  1. LIDOCAINE. [Concomitant]
     Active Substance: LIDOCAINE
     Indication: NERVE BLOCK
  2. DEPO-MEDROL [Suspect]
     Active Substance: METHYLPREDNISOLONE ACETATE
     Indication: NERVE BLOCK
  3. ISOVUE 300 [Concomitant]
     Active Substance: IOPAMIDOL
     Indication: NERVE BLOCK
     Dosage: 0.2 ML (CC)
  4. DEPO-MEDROL [Suspect]
     Active Substance: METHYLPREDNISOLONE ACETATE
     Indication: LUMBAR RADICULOPATHY
     Dosage: 40 MG
     Route: 013
  5. LIDOCAINE. [Concomitant]
     Active Substance: LIDOCAINE
     Indication: LUMBAR RADICULOPATHY
     Dosage: 1 ML (CC)

REACTIONS (6)
  - Product use in unapproved indication [Unknown]
  - Spinal cord injury [Not Recovered/Not Resolved]
  - Off label use [Unknown]
  - Incorrect route of product administration [Unknown]
  - Paraplegia [Not Recovered/Not Resolved]
  - Spinal cord infarction [Not Recovered/Not Resolved]
